FAERS Safety Report 15799177 (Version 1)
Quarter: 2018Q4

REPORT INFORMATION
  Report Type: Spontaneous
  Country: US (occurrence: US)
  Receive Date: 20181213
  Receipt Date: 20181213
  Transmission Date: 20190205
  Serious: Yes (Hospitalization)
  Sender: FDA-Public Use
  Company Number: None

PATIENT
  Age: 71 Year
  Sex: Female
  Weight: 79.1 kg

DRUGS (1)
  1. GEMCITABINE HYDROCHLORIDE. [Suspect]
     Active Substance: GEMCITABINE HYDROCHLORIDE
     Dates: end: 20170823

REACTIONS (10)
  - Sepsis [None]
  - Enterococcus test positive [None]
  - Urinary tract infection [None]
  - Mental status changes [None]
  - Colitis [None]
  - Incontinence [None]
  - Muscular weakness [None]
  - Fall [None]
  - Pyrexia [None]
  - Abdominal infection [None]

NARRATIVE: CASE EVENT DATE: 20170905
